FAERS Safety Report 7018749-3 (Version None)
Quarter: 2010Q3

REPORT INFORMATION
  Report Type: 
  Country: None (occurrence: None)
  Receive Date: 20100928
  Receipt Date: 20100915
  Transmission Date: 20110219
  Serious: Yes (Hospitalization)
  Sender: FDA-Public Use
  Company Number: NL-TEVA-249026ISR

PATIENT
  Sex: Female
  Weight: 57 kg

DRUGS (8)
  1. METFORMIN [Suspect]
     Dates: start: 20090101, end: 20100820
  2. ADALIMUMAB [Suspect]
     Indication: RHEUMATOID ARTHRITIS
     Dates: start: 20100317, end: 20100809
  3. ROSUVASTATIN [Suspect]
     Dates: start: 20040101, end: 20100827
  4. ESOMEPRAZOLE MAGNESIUM [Concomitant]
     Dates: start: 20100810
  5. CALCIUM CARBONATE [Concomitant]
     Dates: start: 20100810
  6. IRBESARTAN [Concomitant]
     Dates: start: 20060101
  7. CLARITHROMYCIN [Concomitant]
     Dates: start: 20100827
  8. RISEDRONATE SODIUM [Concomitant]
     Dates: start: 20100809

REACTIONS (1)
  - ALVEOLITIS ALLERGIC [None]
